FAERS Safety Report 23703620 (Version 1)
Quarter: 2024Q2

REPORT INFORMATION
  Report Type: Spontaneous
  Country: US (occurrence: None)
  Receive Date: 20240403
  Receipt Date: 20240403
  Transmission Date: 20240716
  Serious: Yes (Other)
  Sender: FDA-Public Use
  Company Number: None

PATIENT
  Age: 55 Year
  Sex: Male
  Weight: 86 kg

DRUGS (1)
  1. FERAHEME [Suspect]
     Active Substance: FERUMOXYTOL NON-STOICHIOMETRIC MAGNETITE
     Indication: Blood iron
     Dosage: 510 MG 1 OF 2 INTRAVENOUS
     Route: 042
     Dates: start: 20240321, end: 20240321

REACTIONS (5)
  - Dizziness [None]
  - Infusion related reaction [None]
  - Blood pressure decreased [None]
  - Blood sodium decreased [None]
  - Seizure [None]

NARRATIVE: CASE EVENT DATE: 20240321
